FAERS Safety Report 8303652-9 (Version None)
Quarter: 2012Q2

REPORT INFORMATION
  Report Type: 
  Country: None (occurrence: None)
  Receive Date: 20120423
  Receipt Date: 20120417
  Transmission Date: 20120825
  Serious: Yes (Other)
  Sender: FDA-Public Use
  Company Number: US-PFIZER INC-2012047403

PATIENT
  Sex: Female

DRUGS (3)
  1. CLONAZEPAM [Concomitant]
     Indication: SLEEP DISORDER
     Dosage: 4 MG, UNK
  2. CLONAZEPAM [Concomitant]
     Indication: ANXIETY
  3. XANAX [Suspect]
     Indication: ANXIETY
     Dosage: 0.5 MG, UNK
     Route: 048

REACTIONS (2)
  - ARTHROPATHY [None]
  - DRUG INEFFECTIVE [None]
